FAERS Safety Report 15420175 (Version 1)
Quarter: 2018Q3

REPORT INFORMATION
  Report Type: Spontaneous
  Country: GB (occurrence: GB)
  Receive Date: 20180924
  Receipt Date: 20180924
  Transmission Date: 20181010
  Serious: Yes (Other)
  Sender: FDA-Public Use
  Company Number: GB-CELGENEUS-GBR-20180906392

PATIENT
  Age: 49 Year
  Sex: Female

DRUGS (5)
  1. OTEZLA [Suspect]
     Active Substance: APREMILAST
     Dosage: 20 MILLIGRAM
     Route: 048
     Dates: start: 20180608, end: 20180622
  2. OTEZLA [Suspect]
     Active Substance: APREMILAST
     Dosage: 10 MILLIGRAM
     Route: 048
     Dates: start: 20180601, end: 20180608
  3. OTEZLA [Suspect]
     Active Substance: APREMILAST
     Indication: PSORIASIS
     Route: 048
     Dates: start: 20180622, end: 20180816
  4. BUSCOPAN [Concomitant]
     Active Substance: BUTYLSCOPOLAMINE BROMIDE
     Indication: PRODUCT USED FOR UNKNOWN INDICATION
     Route: 065
  5. SALBUTAMOL [Concomitant]
     Active Substance: ALBUTEROL
     Indication: PRODUCT USED FOR UNKNOWN INDICATION
     Route: 065

REACTIONS (3)
  - Depression [Unknown]
  - Intentional self-injury [Unknown]
  - Suicidal behaviour [Not Recovered/Not Resolved]

NARRATIVE: CASE EVENT DATE: 20180829
